FAERS Safety Report 5858004-8 (Version None)
Quarter: 2008Q3

REPORT INFORMATION
  Report Type: 
  Country: None (occurrence: None)
  Receive Date: 20080826
  Receipt Date: 20080820
  Transmission Date: 20090109
  Serious: Yes (Other)
  Sender: FDA-Public Use
  Company Number: US-JNJFOC-20080804878

PATIENT
  Sex: Male

DRUGS (1)
  1. INFANTS MYLICON NON-STAINING FORMULA [Suspect]
     Indication: FLATULENCE
     Route: 048

REACTIONS (1)
  - HAEMATEMESIS [None]
